FAERS Safety Report 7434804-8 (Version None)
Quarter: 2011Q2

REPORT INFORMATION
  Report Type: 
  Country: None (occurrence: None)
  Receive Date: 20110425
  Receipt Date: 20110415
  Transmission Date: 20111010
  Serious: Yes (Death)
  Sender: FDA-Public Use
  Company Number: US-PURDUE-USA-2011-0067083

PATIENT
  Sex: Female

DRUGS (1)
  1. BUTRANS [Suspect]
     Indication: ANALGESIC THERAPY
     Dosage: UNK UNK, SEE TEXT
     Route: 062

REACTIONS (1)
  - NEOPLASM MALIGNANT [None]
